FAERS Safety Report 23667602 (Version 1)
Quarter: 2024Q1

REPORT INFORMATION
  Report Type: Spontaneous
  Country: US (occurrence: US)
  Receive Date: 20240325
  Receipt Date: 20240325
  Transmission Date: 20240409
  Serious: Yes (Other)
  Sender: FDA-Public Use
  Company Number: US-BRISTOL-MYERS SQUIBB COMPANY-2023-061376

PATIENT
  Age: 73 Year
  Sex: Female

DRUGS (1)
  1. THALOMID [Suspect]
     Active Substance: THALIDOMIDE
     Indication: Acute febrile neutrophilic dermatosis
     Dosage: 50 QD
     Route: 048
     Dates: end: 20240318

REACTIONS (2)
  - Neuropathy peripheral [Unknown]
  - Off label use [Unknown]
